FAERS Safety Report 16531633 (Version 1)
Quarter: 2019Q3

REPORT INFORMATION
  Report Type: Spontaneous
  Country: US (occurrence: US)
  Receive Date: 20190523
  Receipt Date: 20190523
  Transmission Date: 20191004
  Serious: No
  Sender: FDA-Public Use
  Company Number: None

PATIENT
  Age: 47 Year
  Sex: Female

DRUGS (3)
  1. IBRANCE [Suspect]
     Active Substance: PALBOCICLIB
     Indication: BREAST CANCER
     Route: 048
     Dates: start: 201904, end: 201905
  2. FASLODEX [Concomitant]
     Active Substance: FULVESTRANT
  3. XGEVA [Concomitant]
     Active Substance: DENOSUMAB

REACTIONS (2)
  - Alopecia [None]
  - Gastric dilatation [None]

NARRATIVE: CASE EVENT DATE: 20190523
